FAERS Safety Report 7239427-1 (Version None)
Quarter: 2011Q1

REPORT INFORMATION
  Report Type: 
  Country: None (occurrence: None)
  Receive Date: 20110121
  Receipt Date: 20110105
  Transmission Date: 20110831
  Serious: Yes (Hospitalization, Other)
  Sender: FDA-Public Use
  Company Number: PHHY2010DE67392

PATIENT
  Sex: Female

DRUGS (3)
  1. ESTRADERM [Suspect]
     Indication: HORMONE REPLACEMENT THERAPY
     Dosage: 50 MCG / 24 H , 1 PATCH EVERY WEDNESDAY AND SATURDAY3 OR 4 DAYS
     Route: 062
  2. ESTRADERM [Suspect]
     Indication: MENOPAUSAL SYMPTOMS
  3. MAGNESIUM [Concomitant]

REACTIONS (21)
  - CHEST PAIN [None]
  - LYMPHOEDEMA [None]
  - MITRAL VALVE INCOMPETENCE [None]
  - HYPOTHYROIDISM [None]
  - BLOOD THYROID STIMULATING HORMONE INCREASED [None]
  - HEART RATE INCREASED [None]
  - ANGINA PECTORIS [None]
  - TRICUSPID VALVE INCOMPETENCE [None]
  - HEPATIC CYST [None]
  - ATRIAL SEPTAL DEFECT [None]
  - DIZZINESS [None]
  - ATRIAL FIBRILLATION [None]
  - VISUAL IMPAIRMENT [None]
  - HAEMORRHAGE [None]
  - BLOOD PRESSURE INCREASED [None]
  - HEART RATE DECREASED [None]
  - SYNOVIAL CYST [None]
  - OEDEMA PERIPHERAL [None]
  - ARRHYTHMIA [None]
  - THYROIDITIS SUBACUTE [None]
  - MIGRAINE [None]
